FAERS Safety Report 11240655 (Version 1)
Quarter: 2015Q3

REPORT INFORMATION
  Report Type: Spontaneous
  Country: CZ (occurrence: CZ)
  Receive Date: 20150706
  Receipt Date: 20150706
  Transmission Date: 20151125
  Serious: Yes (Hospitalization, Other)
  Sender: FDA-Public Use
  Company Number: PHHY2015CZ077184

PATIENT
  Age: 1 Year
  Sex: Female
  Weight: 11 kg

DRUGS (1)
  1. AMOKSIKLAV [Suspect]
     Active Substance: AMOXICILLIN\CLAVULANATE POTASSIUM
     Indication: PYELONEPHRITIS ACUTE
     Dosage: 312.5 MG/ML, UNK
     Route: 048
     Dates: start: 20150521, end: 20150525

REACTIONS (2)
  - Diarrhoea [Recovered/Resolved]
  - Escherichia pyelonephritis [Unknown]

NARRATIVE: CASE EVENT DATE: 20150525
